FAERS Safety Report 8491453-0 (Version None)
Quarter: 2012Q3

REPORT INFORMATION
  Report Type: 
  Country: None (occurrence: None)
  Receive Date: 20120706
  Receipt Date: 20120628
  Transmission Date: 20120928
  Serious: Yes (Other)
  Sender: FDA-Public Use
  Company Number: US-JNJFOC-20120700521

PATIENT
  Sex: Female
  Weight: 104.33 kg

DRUGS (4)
  1. NEXIUM [Concomitant]
     Indication: GASTROOESOPHAGEAL REFLUX DISEASE
     Route: 048
  2. NEXIUM [Concomitant]
     Indication: ULCER
     Route: 048
  3. PREDNISONE TAB [Concomitant]
     Indication: CONDITION AGGRAVATED
     Dosage: FREQUENCY:  DAILY/AS NEEDED       INDICATION: FLARE-UPS (UNSPECIFIED)
     Route: 048
  4. REMICADE [Suspect]
     Indication: ANKYLOSING SPONDYLITIS
     Dosage: DOSE  7 VIALS
     Route: 042
     Dates: start: 20050101, end: 20111101

REACTIONS (2)
  - PAIN [None]
  - FIBROMYALGIA [None]
